FAERS Safety Report 18641444 (Version 1)
Quarter: 2020Q4

REPORT INFORMATION
  Report Type: Spontaneous
  Country: US (occurrence: US)
  Receive Date: 20201218
  Receipt Date: 20201218
  Transmission Date: 20210114
  Serious: No
  Sender: FDA-Public Use
  Company Number: None

PATIENT
  Age: 60 Year
  Sex: Male
  Weight: 101 kg

DRUGS (1)
  1. PROBENECID (PROBENECID 500MG TAB) [Suspect]
     Active Substance: PROBENECID
     Indication: GOUT
     Dates: start: 20200331, end: 20200806

REACTIONS (3)
  - Sedation [None]
  - Syncope [None]
  - Dizziness [None]

NARRATIVE: CASE EVENT DATE: 20200806
